FAERS Safety Report 7313410-X (Version None)
Quarter: 2011Q1

REPORT INFORMATION
  Report Type: 
  Country: None (occurrence: None)
  Receive Date: 20110225
  Receipt Date: 20110221
  Transmission Date: 20110831
  Serious: No
  Sender: FDA-Public Use
  Company Number: US-PFIZER INC-2011015373

PATIENT
  Age: 12 Year
  Sex: Male
  Weight: 63.5 kg

DRUGS (4)
  1. PULMICORT [Concomitant]
     Indication: ASTHMA
  2. ADVIL CONGESTION RELIEF [Suspect]
     Indication: HEADACHE
  3. ADVIL CONGESTION RELIEF [Suspect]
     Indication: NASAL CONGESTION
     Dosage: 1 CAPLET, 2 OR 3 TIMES PER DAY
     Route: 048
     Dates: start: 20110109, end: 20110113
  4. ADVIL CONGESTION RELIEF [Suspect]
     Indication: NASAL OEDEMA

REACTIONS (1)
  - DRUG INEFFECTIVE [None]
